FAERS Safety Report 11624876 (Version 4)
Quarter: 2015Q4

REPORT INFORMATION
  Report Type: Report from Study
  Country: US (occurrence: US)
  Receive Date: 20151013
  Receipt Date: 20151126
  Transmission Date: 20160304
  Serious: Yes (Hospitalization, Other)
  Sender: FDA-Public Use
  Company Number: US-AMGEN-USASP2015105722

PATIENT
  Age: 54 Year
  Sex: Female

DRUGS (1)
  1. ENBREL [Suspect]
     Active Substance: ETANERCEPT
     Indication: PRODUCT USED FOR UNKNOWN INDICATION
     Dosage: 50 MG, QWK
     Route: 065

REACTIONS (8)
  - Malaise [Unknown]
  - Local swelling [Unknown]
  - Injection site mass [Unknown]
  - Pain [Unknown]
  - Device issue [Unknown]
  - Pharyngeal operation [Unknown]
  - Throat cancer [Recovering/Resolving]
  - Neck pain [Unknown]
